FAERS Safety Report 4493377-2 (Version None)
Quarter: 2004Q4

REPORT INFORMATION
  Report Type: 
  Country: None (occurrence: None)
  Receive Date: 20041104
  Receipt Date: 20041013
  Transmission Date: 20050328
  Serious: Yes (Other)
  Sender: FDA-Public Use
  Company Number: US-MERCK-0410USA02093

PATIENT
  Age: 41 Year
  Sex: Male

DRUGS (13)
  1. VIOXX [Suspect]
     Indication: INTERVERTEBRAL DISC DEGENERATION
     Route: 048
     Dates: start: 20030101, end: 20031001
  2. VIOXX [Suspect]
     Indication: ARTHRITIS
     Route: 048
     Dates: start: 20030101, end: 20031001
  3. ZOCOR [Concomitant]
     Route: 065
  4. DIOVAN [Concomitant]
     Route: 048
     Dates: start: 20010101
  5. AMOXIL [Concomitant]
     Route: 048
     Dates: start: 20030401
  6. LESCOL [Concomitant]
     Route: 048
     Dates: start: 20030401
  7. KLOR-CON [Concomitant]
     Route: 048
     Dates: start: 20030401
  8. IBUPROFEN [Concomitant]
     Route: 048
     Dates: start: 20030401
  9. TIAZAC [Concomitant]
     Route: 048
     Dates: start: 20010101
  10. PREVACID [Concomitant]
     Route: 048
     Dates: start: 20010101
  11. ASPIRIN [Concomitant]
     Route: 048
     Dates: start: 20030401
  12. HYDROCODONE HYDROCHLORIDE [Concomitant]
     Route: 065
  13. CARISOPRODOL [Concomitant]
     Route: 048

REACTIONS (4)
  - ARTERIAL OCCLUSIVE DISEASE [None]
  - CHEST PAIN [None]
  - FEELING ABNORMAL [None]
  - VEIN PAIN [None]
